FAERS Safety Report 17457881 (Version 1)
Quarter: 2020Q1

REPORT INFORMATION
  Report Type: Spontaneous
  Country: CA (occurrence: CA)
  Receive Date: 20200225
  Receipt Date: 20200225
  Transmission Date: 20200409
  Serious: Yes (Disabling)
  Sender: FDA-Public Use
  Company Number: CA-PFIZER INC-2020081831

PATIENT
  Age: 63 Year
  Sex: Female

DRUGS (4)
  1. TIAPROFENIC ACID [Concomitant]
     Active Substance: TIAPROFENIC ACID
     Dosage: 300 MG, 2X/DAY
  2. LYRICA [Suspect]
     Active Substance: PREGABALIN
     Dosage: 75 MG, 3X/DAY
  3. PLAQUENIL [Concomitant]
     Active Substance: HYDROXYCHLOROQUINE SULFATE
     Dosage: 400 MG, AT BEDTIME
  4. PANTOLOC CONTROL [Concomitant]
     Active Substance: PANTOPRAZOLE SODIUM
     Dosage: 40 MG, 1X/DAY

REACTIONS (3)
  - Loss of personal independence in daily activities [Unknown]
  - Spinal stenosis [Unknown]
  - Psoriatic arthropathy [Unknown]
